FAERS Safety Report 4441087-X (Version None)
Quarter: 2004Q3

REPORT INFORMATION
  Report Type: 
  Country: None (occurrence: None)
  Receive Date: 20040902
  Receipt Date: 20040902
  Transmission Date: 20050211
  Serious: No
  Sender: FDA-Public Use
  Company Number: None

PATIENT

DRUGS (2)
  1. MAGNESIUM SULFATE [Suspect]
     Dosage: 1 GRAM INTRAVENOUS
     Route: 042
  2. MAGNESIUM SULFATE [Suspect]
     Dosage: 4 GRAM INTRAVENOUS
     Route: 042

REACTIONS (1)
  - MEDICATION ERROR [None]
